FAERS Safety Report 16289691 (Version 1)
Quarter: 2019Q2

REPORT INFORMATION
  Report Type: Spontaneous
  Country: US (occurrence: US)
  Receive Date: 20190509
  Receipt Date: 20190509
  Transmission Date: 20190711
  Serious: No
  Sender: FDA-Public Use
  Company Number: US-TEVA-2019-US-1046807

PATIENT
  Age: 45 Year
  Sex: Female

DRUGS (1)
  1. CLONIDINE. [Suspect]
     Active Substance: CLONIDINE
     Indication: SINUS TACHYCARDIA
     Dosage: THREE TIMES DAILY
     Route: 065

REACTIONS (2)
  - Mood altered [Unknown]
  - Dry mouth [Unknown]
